FAERS Safety Report 7791940-4 (Version None)
Quarter: 2011Q4

REPORT INFORMATION
  Report Type: 
  Country: None (occurrence: None)
  Receive Date: 20111003
  Receipt Date: 20110929
  Transmission Date: 20120403
  Serious: Yes (Death, Other)
  Sender: FDA-Public Use
  Company Number: PHHY2011BR86565

PATIENT
  Sex: Female

DRUGS (2)
  1. EXELON [Suspect]
     Dosage: 3 MG, UNK
  2. EXELON [Suspect]
     Dosage: 6 MG, UNK

REACTIONS (3)
  - DEMENTIA ALZHEIMER'S TYPE [None]
  - CEREBROVASCULAR ACCIDENT [None]
  - PNEUMONIA [None]
